FAERS Safety Report 11844306 (Version 2)
Quarter: 2015Q4

REPORT INFORMATION
  Report Type: Spontaneous
  Country: IT (occurrence: IT)
  Receive Date: 20151217
  Receipt Date: 20151230
  Transmission Date: 20160305
  Serious: Yes (Other)
  Sender: FDA-Public Use
  Company Number: IT-ACTAVIS-2015-27851

PATIENT
  Age: 45 Year
  Sex: Male
  Weight: 72 kg

DRUGS (5)
  1. FLUOROURACIL (UNKNOWN) [Suspect]
     Active Substance: FLUOROURACIL
     Indication: SMALL INTESTINE CARCINOMA
     Dosage: 740 MG, CYCLICAL (BOLUS)
     Route: 042
     Dates: start: 20150209, end: 20150409
  2. LEDERFOLIN [Suspect]
     Active Substance: LEUCOVORIN CALCIUM
     Indication: SMALL INTESTINE CARCINOMA
     Dosage: 370 MG, CYCLICAL
     Route: 042
     Dates: start: 20150209
  3. OXALIPLATIN (UNKNOWN) [Suspect]
     Active Substance: OXALIPLATIN
     Dosage: 120 MG, CYCLICAL
     Route: 042
  4. OXALIPLATIN (UNKNOWN) [Suspect]
     Active Substance: OXALIPLATIN
     Indication: SMALL INTESTINE CARCINOMA
     Dosage: 150 MG, CYCLICAL
     Route: 042
     Dates: start: 20150209
  5. FLUOROURACIL (UNKNOWN) [Suspect]
     Active Substance: FLUOROURACIL
     Dosage: 4440 MG, CYCLICAL (INFUSION)
     Route: 042
     Dates: start: 20150209

REACTIONS (6)
  - Infusion related reaction [Recovered/Resolved]
  - Diarrhoea [Unknown]
  - Erythema [Recovered/Resolved]
  - Asthenia [Unknown]
  - Weight decreased [Unknown]
  - Pruritus [Recovered/Resolved]

NARRATIVE: CASE EVENT DATE: 20150225
